FAERS Safety Report 18394603 (Version 2)
Quarter: 2020Q4

REPORT INFORMATION
  Report Type: Spontaneous
  Country: US (occurrence: US)
  Receive Date: 20201017
  Receipt Date: 20201122
  Transmission Date: 20210114
  Serious: Yes (Other)
  Sender: FDA-Public Use
  Company Number: NVSC2020US276570

PATIENT

DRUGS (1)
  1. COSENTYX [Suspect]
     Active Substance: SECUKINUMAB
     Indication: PSORIASIS
     Dosage: 300 MG, UNKNOWN
     Route: 058

REACTIONS (6)
  - Herpes virus infection [Unknown]
  - Behcet^s syndrome [Unknown]
  - Impetigo [Unknown]
  - Upper respiratory tract infection [Unknown]
  - Candida infection [Unknown]
  - Conjunctivitis [Unknown]
